FAERS Safety Report 6111256-1 (Version None)
Quarter: 2009Q1

REPORT INFORMATION
  Report Type: 
  Country: None (occurrence: None)
  Receive Date: 20090311
  Receipt Date: 20090303
  Transmission Date: 20090719
  Serious: Yes (Hospitalization, Other)
  Sender: FDA-Public Use
  Company Number: US-AVENTIS-200911691US

PATIENT
  Sex: Male

DRUGS (5)
  1. LANTUS [Suspect]
     Route: 058
     Dates: start: 20080101
  2. OPTICLIK (INSULIN INJECTION PEN) [Suspect]
  3. DIOVAN HCT [Concomitant]
     Dosage: DOSE: 320/12.5MG
  4. AMLODINE [Concomitant]
     Dosage: DOSE: 1 TAB
  5. LOPRESSOR [Concomitant]

REACTIONS (4)
  - FALL [None]
  - HEADACHE [None]
  - MUSCULAR WEAKNESS [None]
  - SUBDURAL HAEMATOMA [None]
